FAERS Safety Report 15795512 (Version 2)
Quarter: 2019Q1

REPORT INFORMATION
  Report Type: Spontaneous
  Country: US (occurrence: US)
  Receive Date: 20190107
  Receipt Date: 20190130
  Transmission Date: 20190417
  Serious: Yes (Hospitalization, Other)
  Sender: FDA-Public Use
  Company Number: PHEH2019US000479

PATIENT
  Sex: Female

DRUGS (1)
  1. RECLAST [Suspect]
     Active Substance: ZOLEDRONIC ACID
     Indication: OSTEOPOROSIS
     Dosage: 5 MG, UNK
     Route: 041
     Dates: start: 20181221, end: 20181221

REACTIONS (18)
  - Rash [Recovering/Resolving]
  - Anaphylactic reaction [Unknown]
  - Hypocalcaemia [Recovering/Resolving]
  - Chest pain [Recovering/Resolving]
  - Nausea [Unknown]
  - Headache [Recovering/Resolving]
  - Sneezing [Unknown]
  - Papule [Unknown]
  - Pruritus [Unknown]
  - Myalgia [Recovering/Resolving]
  - Cough [Unknown]
  - Abdominal pain upper [Recovering/Resolving]
  - Chest discomfort [Unknown]
  - Hypomagnesaemia [Recovering/Resolving]
  - Hypophosphataemia [Recovering/Resolving]
  - Hypotension [Recovering/Resolving]
  - Hepatic enzyme increased [Recovering/Resolving]
  - Abdominal pain [Recovering/Resolving]
